FAERS Safety Report 24086406 (Version 1)
Quarter: 2024Q3

REPORT INFORMATION
  Report Type: Spontaneous
  Country: DE (occurrence: DE)
  Receive Date: 20240712
  Receipt Date: 20240712
  Transmission Date: 20241016
  Serious: Yes (Congenital Anomaly)
  Sender: TEVA
  Company Number: DE-EMBRYOTOX-202303590

PATIENT
  Sex: Male
  Weight: 2.59 kg

DRUGS (4)
  1. BISOPROLOL [Suspect]
     Active Substance: BISOPROLOL\BISOPROLOL FUMARATE
     Indication: Tachycardia
     Dosage: 5 [MG/DAY]
     Route: 064
     Dates: start: 20230301, end: 20231115
  2. QUETIAPINE [Suspect]
     Active Substance: QUETIAPINE
     Indication: Sleep disorder
     Dosage: 25 [MG/DAY]/ INTAKE QUESTIONABLE
     Route: 064
  3. LEVOTHYROXINE SODIUM [Concomitant]
     Active Substance: LEVOTHYROXINE SODIUM
     Indication: Autoimmune thyroiditis
     Dosage: 125 [?G/DAY]/ 100-125 ?G/DAY ACCORDING TO TSH VALUES
     Route: 064
     Dates: start: 20230301, end: 20231115
  4. TRIMIPRAMINE [Suspect]
     Active Substance: TRIMIPRAMINE
     Indication: Sleep disorder
     Dosage: 75 [MG/DAY]/75 MG AT ONSET OF PREGNANCY, WEEK 7.1: REDUCED TO 25 MG/DAY
     Route: 064

REACTIONS (2)
  - Hypospadias [Unknown]
  - Foetal exposure during pregnancy [Unknown]

NARRATIVE: CASE EVENT DATE: 20231101
